FAERS Safety Report 8086290-5 (Version None)
Quarter: 2012Q1

REPORT INFORMATION
  Report Type: 
  Country: None (occurrence: None)
  Receive Date: 20120128
  Receipt Date: 20110427
  Transmission Date: 20120608
  Serious: No
  Sender: FDA-Public Use
  Company Number: US-ABBOTT-11P-163-0722494-00

PATIENT
  Sex: Female
  Weight: 81.72 kg

DRUGS (5)
  1. UNNAMED ANTI-INFLAMMATORY MEDICATION [Concomitant]
     Indication: PSORIATIC ARTHROPATHY
  2. UNNAMED THYROID MEDICATION [Concomitant]
     Indication: THYROIDECTOMY
  3. HUMIRA [Suspect]
     Indication: PSORIATIC ARTHROPATHY
     Dates: start: 20090101
  4. UNNAMED BLOOD PRESSURE MEDICATION [Concomitant]
     Indication: HYPERTENSION
  5. UNNAMED GOUT MEDICATION [Concomitant]
     Indication: GOUT

REACTIONS (6)
  - HEADACHE [None]
  - POLLAKIURIA [None]
  - NAUSEA [None]
  - DRUG ADMINISTRATION ERROR [None]
  - ASTHENIA [None]
  - CRYING [None]
